APPROVED DRUG PRODUCT: NALMEFENE HYDROCHLORIDE
Active Ingredient: NALMEFENE HYDROCHLORIDE
Strength: EQ 2MG BASE/2ML (EQ 1MG BASE/ML)
Dosage Form/Route: SOLUTION;INTRAMUSCULAR, INTRAVENOUS, SUBCUTANEOUS
Application: A212955 | Product #001 | TE Code: AP
Applicant: PURDUE PHARMA LP
Approved: Feb 8, 2022 | RLD: No | RS: Yes | Type: RX